FAERS Safety Report 8923260 (Version 1)
Quarter: 2012Q4

REPORT INFORMATION
  Report Type: 
  Country: GR (occurrence: GR)
  Receive Date: 20121123
  Receipt Date: 20121123
  Transmission Date: 20130627
  Serious: Yes (Hospitalization)
  Sender: FDA-Public Use
  Company Number: GR-JNJFOC-20121109969

PATIENT
  Age: 32 Year
  Sex: Male

DRUGS (2)
  1. REMICADE [Suspect]
     Indication: CROHN^S DISEASE
     Route: 042
     Dates: start: 20121005, end: 20121005
  2. AZATHIOPRINE [Concomitant]
     Route: 065

REACTIONS (2)
  - Hypersensitivity [Recovered/Resolved with Sequelae]
  - Immunoglobulins increased [Recovered/Resolved with Sequelae]
